FAERS Safety Report 9430459 (Version 1)
Quarter: 2013Q3

REPORT INFORMATION
  Report Type: Spontaneous
  Country: GB (occurrence: GB)
  Receive Date: 20130730
  Receipt Date: 20130730
  Transmission Date: 20140515
  Serious: Yes (Life-Threatening, Hospitalization, Disabling)
  Sender: FDA-Public Use
  Company Number: GB-GLAXOSMITHKLINE-B0911040A

PATIENT
  Age: 51 Year
  Sex: Female
  Weight: 144.5 kg

DRUGS (11)
  1. SERETIDE [Suspect]
     Indication: ASTHMA
     Route: 055
     Dates: start: 200504, end: 20121204
  2. HYDROCORTISONE [Concomitant]
  3. MICARDIS [Concomitant]
  4. GLUCOPHAGE [Concomitant]
  5. COLECALCIFEROL [Concomitant]
  6. VITAMIN B12 [Concomitant]
  7. AERIUS [Concomitant]
  8. VENTOLIN [Concomitant]
  9. HRT [Concomitant]
  10. THYROXINE [Concomitant]
  11. CALCIUM/MAGNESIUM/SODIUM BICARBONATE [Concomitant]

REACTIONS (25)
  - Cushing^s syndrome [Not Recovered/Not Resolved]
  - Adrenal insufficiency [Not Recovered/Not Resolved]
  - Hypothyroidism [Not Recovered/Not Resolved]
  - Hypoglycaemia [Not Recovered/Not Resolved]
  - Hyperinsulinaemia [Not Recovered/Not Resolved]
  - Arrhythmia [Not Recovered/Not Resolved]
  - Blood cholesterol increased [Recovering/Resolving]
  - Hypertension [Not Recovered/Not Resolved]
  - Osteopenia [Not Recovered/Not Resolved]
  - Muscle atrophy [Not Recovered/Not Resolved]
  - Vitamin D deficiency [Not Recovered/Not Resolved]
  - Anaemia vitamin B12 deficiency [Not Recovered/Not Resolved]
  - Blood testosterone decreased [Not Recovered/Not Resolved]
  - Oestrogen deficiency [Not Recovered/Not Resolved]
  - Progesterone decreased [Not Recovered/Not Resolved]
  - Muscle atrophy [Not Recovered/Not Resolved]
  - Wheelchair user [Not Recovered/Not Resolved]
  - Weight increased [Unknown]
  - Malaise [Unknown]
  - Rash [Unknown]
  - Acne [Unknown]
  - Menorrhagia [Recovered/Resolved]
  - Lymphadenopathy [Unknown]
  - Fatigue [Unknown]
  - Hypopituitarism [Unknown]
